FAERS Safety Report 18847000 (Version 1)
Quarter: 2021Q1

REPORT INFORMATION
  Report Type: Report from Study
  Country: US (occurrence: US)
  Receive Date: 20210203
  Receipt Date: 20210203
  Transmission Date: 20210419
  Serious: No
  Sender: FDA-Public Use
  Company Number: US-EXELIXIS-CABO-20032654

PATIENT
  Sex: Male

DRUGS (14)
  1. CABOMETYX [Suspect]
     Active Substance: CABOZANTINIB S-MALATE
     Dosage: 20MG QOD WITH 40MG QOD
  2. VITAMIN B12 [Concomitant]
     Active Substance: CYANOCOBALAMIN
  3. FUROSEMIDE. [Concomitant]
     Active Substance: FUROSEMIDE
  4. CINNAMIN [Concomitant]
  5. ZOMETA [Concomitant]
     Active Substance: ZOLEDRONIC ACID
  6. VITAMIN D [Concomitant]
     Active Substance: VITAMIN D NOS
  7. IRON [Concomitant]
     Active Substance: IRON
  8. BIOTIN [Concomitant]
     Active Substance: BIOTIN
  9. CABOMETYX [Suspect]
     Active Substance: CABOZANTINIB S-MALATE
     Indication: RENAL CELL CARCINOMA STAGE IV
     Dosage: 40 MG, QD
     Dates: start: 201805
  10. LISINOPRIL. [Concomitant]
     Active Substance: LISINOPRIL
  11. MAGNESIUM [Concomitant]
     Active Substance: MAGNESIUM
  12. OXYCODONE [Concomitant]
     Active Substance: OXYCODONE
  13. FLAXSEED [Concomitant]
     Active Substance: FLAX SEED
  14. METOPROLOL. [Concomitant]
     Active Substance: METOPROLOL

REACTIONS (5)
  - Fatigue [Unknown]
  - Diarrhoea [Unknown]
  - Fluid retention [Unknown]
  - Thrombosis [Unknown]
  - Blood pressure increased [Unknown]
